FAERS Safety Report 7486005-5 (Version None)
Quarter: 2011Q2

REPORT INFORMATION
  Report Type: 
  Country: None (occurrence: None)
  Receive Date: 20110517
  Receipt Date: 20110502
  Transmission Date: 20111010
  Serious: Yes (Hospitalization)
  Sender: FDA-Public Use
  Company Number: ES-BAYER-2011-040006

PATIENT

DRUGS (12)
  1. NAPROXEN SODIUM [Suspect]
     Indication: ANTIINFLAMMATORY THERAPY
     Route: 065
  2. TRAMADOL HCL [Suspect]
     Indication: ANALGESIC THERAPY
     Route: 065
  3. CALCIUM CHANNEL BLOCKERS [Suspect]
     Indication: DRUG THERAPY
     Route: 065
  4. ACE INHIBITOR NOS [Suspect]
     Indication: DRUG THERAPY
     Route: 065
  5. KETOROLAC TROMETHAMINE [Suspect]
     Indication: ANTIINFLAMMATORY THERAPY
     Route: 065
  6. TRIFLUSAL [Suspect]
     Indication: ANTIPLATELET THERAPY
     Route: 065
  7. DICLOFENAC [DICLOFENAC] [Suspect]
     Indication: ANTIINFLAMMATORY THERAPY
     Route: 065
  8. BETA BLOCKING AGENTS [Suspect]
     Indication: DRUG THERAPY
     Route: 065
  9. ASPIRIN [Suspect]
     Indication: ANTIINFLAMMATORY THERAPY
     Route: 065
  10. ACETAMINOPHEN [Suspect]
     Indication: ANALGESIC THERAPY
     Route: 065
  11. METAMIZOL [Suspect]
     Indication: ANALGESIC THERAPY
     Route: 065
  12. PIROXICAM [Suspect]
     Indication: ANTIINFLAMMATORY THERAPY
     Route: 065

REACTIONS (1)
  - PEPTIC ULCER HAEMORRHAGE [None]
